FAERS Safety Report 12987290 (Version 1)
Quarter: 2016Q4

REPORT INFORMATION
  Report Type: Spontaneous
  Country: CN (occurrence: CN)
  Receive Date: 20161130
  Receipt Date: 20161130
  Transmission Date: 20170207
  Serious: Yes (Hospitalization)
  Sender: FDA-Public Use
  Company Number: CN-BAYER-2016-223690

PATIENT
  Age: 58 Year
  Sex: Male

DRUGS (1)
  1. NEXAVAR [Suspect]
     Active Substance: SORAFENIB
     Indication: HEPATIC CANCER
     Dosage: 400 MG, BID
     Route: 048
     Dates: start: 201401

REACTIONS (5)
  - Diarrhoea [Recovering/Resolving]
  - Hepatic cancer [None]
  - Hepatic cancer recurrent [None]
  - Hepatic cancer [None]
  - Alpha 1 foetoprotein increased [None]

NARRATIVE: CASE EVENT DATE: 201404
